FAERS Safety Report 12683715 (Version 1)
Quarter: 2016Q3

REPORT INFORMATION
  Report Type: Spontaneous
  Country: US (occurrence: US)
  Receive Date: 20160825
  Receipt Date: 20160825
  Transmission Date: 20161109
  Serious: Yes (Other)
  Sender: FDA-Public Use
  Company Number: US-PERRIGO-16US019118

PATIENT
  Age: 50 Year
  Sex: Male

DRUGS (1)
  1. MESALAZINE [Suspect]
     Active Substance: MESALAMINE
     Indication: CROHN^S DISEASE
     Dosage: UNKNOWN, UNKNOWN
     Route: 054

REACTIONS (6)
  - Nephrotic syndrome [Recovered/Resolved]
  - Pollakiuria [Recovered/Resolved]
  - Hypoproteinaemia [Recovered/Resolved]
  - Hypoalbuminaemia [Recovered/Resolved]
  - Hypercholesterolaemia [Recovered/Resolved]
  - Oedema peripheral [Recovered/Resolved]
